FAERS Safety Report 9998262 (Version 2)
Quarter: 2014Q1

REPORT INFORMATION
  Report Type: Spontaneous
  Country: GR (occurrence: GR)
  Receive Date: 20140311
  Receipt Date: 20140320
  Transmission Date: 20141002
  Serious: Yes (Death, Life-Threatening, Hospitalization, Disabling, Other)
  Sender: FDA-Public Use
  Company Number: GR-009507513-1403GRC003128

PATIENT
  Age: 70 Year
  Sex: Female
  Weight: 60 kg

DRUGS (10)
  1. TEMODAL [Suspect]
     Indication: GLIOMA
     Dosage: 75 MG/M2, TOTAL DAILY DOSE OF 140 MG
     Route: 048
     Dates: start: 20131024, end: 20131204
  2. TEMODAL [Suspect]
     Dosage: 75 MG/M2, TOTAL DAILY DOSE OF 140 MG
     Route: 048
     Dates: start: 20131206, end: 20131213
  3. TEMODAL [Suspect]
     Dosage: 75 MG/M2, TOTAL DAILY DOSE OF 140 MG
     Route: 048
     Dates: start: 20131216, end: 20131217
  4. AVASTIN (BEVACIZUMAB) [Concomitant]
     Indication: GLIOMA
     Dosage: UNK, ONE DAY THERAPY
     Dates: start: 20131113, end: 20131113
  5. AVASTIN (BEVACIZUMAB) [Concomitant]
     Dosage: UNK, ONE DAY THERAPY
     Dates: start: 20131204
  6. KEPRA [Concomitant]
     Indication: GLIOMA
     Dosage: UNK, TOTAL DAILY DOSE 1500 MG
     Route: 048
     Dates: start: 20131017, end: 20140110
  7. DEXAMETHASONE [Concomitant]
     Indication: GLIOMA
     Dosage: UNK, TOTAL DAILY DOSE: 2 -30 CC
     Route: 048
     Dates: start: 20131017, end: 20140110
  8. XALATAN [Concomitant]
     Indication: GLAUCOMA
     Dosage: UNK
     Route: 047
     Dates: start: 201304, end: 20140110
  9. COSOPT [Concomitant]
     Indication: GLAUCOMA
     Dosage: UNK
     Route: 047
     Dates: start: 201304, end: 20140110
  10. ALPHAGAN [Concomitant]
     Indication: GLAUCOMA
     Dosage: UNK
     Route: 047
     Dates: start: 201304, end: 20140110

REACTIONS (11)
  - Haematotoxicity [Fatal]
  - Cytomegalovirus infection [Fatal]
  - Thrombocytopenia [Not Recovered/Not Resolved]
  - Leukopenia [Not Recovered/Not Resolved]
  - Thrombocytopenia [Not Recovered/Not Resolved]
  - Neutropenia [Not Recovered/Not Resolved]
  - Incorrect drug administration duration [Unknown]
  - Asthenia [Unknown]
  - Blood sodium decreased [Unknown]
  - Bone marrow failure [Unknown]
  - Body temperature increased [Unknown]
